FAERS Safety Report 6755847-3 (Version None)
Quarter: 2010Q2

REPORT INFORMATION
  Report Type: 
  Country: None (occurrence: None)
  Receive Date: 20100604
  Receipt Date: 20100524
  Transmission Date: 20101027
  Serious: Yes (Other)
  Sender: FDA-Public Use
  Company Number: US-BAYER-200924408NA

PATIENT
  Age: 66 Year
  Sex: Female

DRUGS (5)
  1. MAGNEVIST [Suspect]
     Indication: VENOGRAM
     Dates: start: 20000513, end: 20000513
  2. MAGNEVIST [Suspect]
     Dates: start: 20021001, end: 20021001
  3. OMNISCAN [Suspect]
     Indication: NUCLEAR MAGNETIC RESONANCE IMAGING
     Dates: start: 20040628, end: 20040628
  4. EPOGEN [Concomitant]
  5. IRON SUPPLEMENTS [Concomitant]

REACTIONS (8)
  - GENERAL PHYSICAL HEALTH DETERIORATION [None]
  - JOINT RANGE OF MOTION DECREASED [None]
  - MOBILITY DECREASED [None]
  - NEPHROGENIC SYSTEMIC FIBROSIS [None]
  - PAIN [None]
  - RASH [None]
  - SKIN HYPERTROPHY [None]
  - SKIN INDURATION [None]
